FAERS Safety Report 20672967 (Version 1)
Quarter: 2022Q2

REPORT INFORMATION
  Report Type: Spontaneous
  Country: BA (occurrence: BA)
  Receive Date: 20220405
  Receipt Date: 20220405
  Transmission Date: 20220721
  Serious: Yes (Other)
  Sender: FDA-Public Use
  Company Number: BA-BAYER-2022A046493

PATIENT

DRUGS (2)
  1. EYLEA [Suspect]
     Active Substance: AFLIBERCEPT
     Indication: Macular oedema
     Dosage: UNK
     Dates: start: 2021
  2. EYLEA [Suspect]
     Active Substance: AFLIBERCEPT
     Indication: Retinal vein occlusion
     Dosage: UNK, AFTER 3 MONTHS OF FIRST APPLICATION
     Dates: start: 2021

REACTIONS (4)
  - Eye haemorrhage [Unknown]
  - Blindness [Recovered/Resolved]
  - Macular oedema [Recovered/Resolved]
  - Inappropriate schedule of product administration [Unknown]
